FAERS Safety Report 14941365 (Version 2)
Quarter: 2018Q3

REPORT INFORMATION
  Report Type: Spontaneous
  Country: US (occurrence: US)
  Receive Date: 20180526
  Receipt Date: 20180721
  Transmission Date: 20181010
  Serious: No
  Sender: FDA-Public Use
  Company Number: US-JNJFOC-20180503358

PATIENT
  Age: 73 Year
  Sex: Male
  Weight: 99.79 kg

DRUGS (1)
  1. XARELTO [Suspect]
     Active Substance: RIVAROXABAN
     Indication: THROMBOSIS
     Route: 048
     Dates: start: 201803

REACTIONS (7)
  - Drug dose omission [Unknown]
  - Incorrect dose administered [Unknown]
  - Rash pruritic [Not Recovered/Not Resolved]
  - Inappropriate schedule of drug administration [Unknown]
  - Product coating issue [Unknown]
  - Off label use [Unknown]
  - Poor quality drug administered [Unknown]

NARRATIVE: CASE EVENT DATE: 2018
